FAERS Safety Report 8024809-0 (Version None)
Quarter: 2012Q1

REPORT INFORMATION
  Report Type: 
  Country: None (occurrence: None)
  Receive Date: 20120105
  Receipt Date: 20111227
  Transmission Date: 20120608
  Serious: Yes (Hospitalization)
  Sender: FDA-Public Use
  Company Number: BR-JNJFOC-20111206002

PATIENT
  Sex: Male
  Weight: 76.5 kg

DRUGS (5)
  1. ABIRATERONE ACETATE [Suspect]
     Indication: PROSTATE CANCER METASTATIC
     Route: 048
     Dates: start: 20111006, end: 20111227
  2. ZOLADEX [Concomitant]
     Indication: HORMONE THERAPY
     Route: 065
     Dates: start: 20110401
  3. ABIRATERONE ACETATE [Suspect]
     Route: 048
  4. PREDNISONE TAB [Suspect]
     Indication: PROSTATE CANCER METASTATIC
     Route: 065
     Dates: start: 20111006
  5. ZOLADEX [Concomitant]
     Route: 065
     Dates: start: 20041201, end: 20051201

REACTIONS (4)
  - FATIGUE [None]
  - BONE PAIN [None]
  - DECREASED APPETITE [None]
  - BUNDLE BRANCH BLOCK LEFT [None]
